FAERS Safety Report 5008831-4 (Version None)
Quarter: 2006Q2

REPORT INFORMATION
  Report Type: 
  Country: None (occurrence: None)
  Receive Date: 20060518
  Receipt Date: 20060505
  Transmission Date: 20061013
  Serious: Yes (Death)
  Sender: FDA-Public Use
  Company Number: GBWYE609208MAY06

PATIENT
  Sex: Male

DRUGS (1)
  1. RAPAMUNE [Suspect]

REACTIONS (2)
  - CHEST DISCOMFORT [None]
  - GENERAL PHYSICAL HEALTH DETERIORATION [None]
